FAERS Safety Report 5335414-9 (Version None)
Quarter: 2007Q2

REPORT INFORMATION
  Report Type: 
  Country: None (occurrence: None)
  Receive Date: 20070525
  Receipt Date: 20070517
  Transmission Date: 20071010
  Serious: Yes (Hospitalization)
  Sender: FDA-Public Use
  Company Number: GB-PFIZER INC-2007040205

PATIENT
  Age: 9 Year
  Sex: Female

DRUGS (1)
  1. SOMATROPIN [Suspect]
     Indication: TURNER'S SYNDROME

REACTIONS (1)
  - THROMBOCYTOPENIC PURPURA [None]
